FAERS Safety Report 9223682 (Version 1)
Quarter: 2013Q2

REPORT INFORMATION
  Report Type: Spontaneous
  Country: US (occurrence: US)
  Receive Date: 20130410
  Receipt Date: 20130410
  Transmission Date: 20140414
  Serious: Yes (Hospitalization, Other)
  Sender: FDA-Public Use
  Company Number: US-OTSUKA-US-2013-10589

PATIENT
  Sex: Female

DRUGS (2)
  1. SAMSCA [Suspect]
  2. LOVENOX [Concomitant]
     Indication: CHEMOTHERAPY

REACTIONS (5)
  - Non-small cell lung cancer stage IV [Unknown]
  - Electrolyte imbalance [Unknown]
  - Hyponatraemia [Unknown]
  - Hypomagnesaemia [Unknown]
  - Hypocalcaemia [Unknown]
